FAERS Safety Report 15357647 (Version 1)
Quarter: 2018Q3

REPORT INFORMATION
  Report Type: Spontaneous
  Country: US (occurrence: US)
  Receive Date: 20180906
  Receipt Date: 20180906
  Transmission Date: 20181010
  Serious: No
  Sender: FDA-Public Use
  Company Number: US-ELI_LILLY_AND_COMPANY-US201808015172

PATIENT
  Sex: Male

DRUGS (1)
  1. CIALIS [Suspect]
     Active Substance: TADALAFIL
     Indication: POLLAKIURIA
     Dosage: 5 MG, DAILY
     Route: 065
     Dates: start: 201802

REACTIONS (3)
  - Off label use [Unknown]
  - Product storage error [Unknown]
  - Spontaneous penile erection [Unknown]
